FAERS Safety Report 15653901 (Version 1)
Quarter: 2018Q4

REPORT INFORMATION
  Report Type: Spontaneous
  Country: US (occurrence: US)
  Receive Date: 20181125
  Receipt Date: 20181125
  Transmission Date: 20190205
  Serious: No
  Sender: FDA-Public Use
  Company Number: US-JNJFOC-20181113665

PATIENT
  Sex: Female

DRUGS (11)
  1. PERCOCET [Concomitant]
     Active Substance: ACETAMINOPHEN\OXYCODONE HYDROCHLORIDE
     Dosage: 5-325 MG
     Route: 050
  2. ATORVASTATIN [Concomitant]
     Active Substance: ATORVASTATIN
     Route: 050
  3. STELARA [Suspect]
     Active Substance: USTEKINUMAB
     Indication: PRODUCT USED FOR UNKNOWN INDICATION
     Route: 058
     Dates: start: 20151022
  4. APAP [Concomitant]
     Active Substance: ACETAMINOPHEN
     Dosage: 10-325 MG
     Route: 050
  5. CHANTIX [Concomitant]
     Active Substance: VARENICLINE TARTRATE
     Route: 065
  6. FOLIC ACID. [Concomitant]
     Active Substance: FOLIC ACID
     Route: 065
  7. NICORETTE [Concomitant]
     Active Substance: NICOTINE
     Route: 065
  8. CIPROFLOXACIN. [Concomitant]
     Active Substance: CIPROFLOXACIN
     Route: 050
  9. OXYCODONE [Concomitant]
     Active Substance: OXYCODONE
     Dosage: 5-325 MG
     Route: 050
  10. CLOPIDOGREL [Concomitant]
     Active Substance: CLOPIDOGREL BISULFATE
     Route: 050
  11. METHOTREXATE. [Concomitant]
     Active Substance: METHOTREXATE
     Route: 050

REACTIONS (3)
  - Headache [Not Recovered/Not Resolved]
  - Psoriasis [Not Recovered/Not Resolved]
  - Peripheral swelling [Not Recovered/Not Resolved]
